FAERS Safety Report 8879746 (Version 3)
Quarter: 2013Q2

REPORT INFORMATION
  Report Type: Report from Study
  Country: JP (occurrence: JP)
  Receive Date: 20121101
  Receipt Date: 20130501
  Transmission Date: 20140414
  Serious: Yes (Other)
  Sender: FDA-Public Use
  Company Number: JP-VERTEX PHARMACEUTICAL INC.-2012-023813

PATIENT
  Age: 65 Year
  Sex: Female

DRUGS (19)
  1. VX-950 (TELAPREVIR) [Suspect]
     Indication: CHRONIC HEPATITIS C
     Dosage: 1500 MG, QD
     Route: 048
     Dates: start: 20120726, end: 20120808
  2. VX-950 (TELAPREVIR) [Suspect]
     Dosage: 750 MG, QD
     Route: 048
     Dates: start: 20120809, end: 20121017
  3. REBETOL [Suspect]
     Indication: CHRONIC HEPATITIS C
     Dosage: 600 MG, QD
     Route: 048
     Dates: start: 20120726, end: 20120801
  4. REBETOL [Suspect]
     Dosage: 400 MG, QD
     Route: 048
     Dates: start: 20120802, end: 20120806
  5. REBETOL [Suspect]
     Dosage: 200 MG, QD
     Route: 048
     Dates: start: 20120807, end: 20121128
  6. REBETOL [Suspect]
     Dosage: 400 MG, QD
     Route: 048
     Dates: start: 20121129, end: 20121226
  7. PEGINTRON [Suspect]
     Indication: CHRONIC HEPATITIS C
     Dosage: 1.5 ?G/KG, QW
     Route: 058
     Dates: start: 20120726, end: 20120726
  8. PEGINTRON [Suspect]
     Dosage: 1.2 ?G/KG, QW
     Route: 058
     Dates: start: 20120802, end: 20120809
  9. PEGINTRON [Suspect]
     Dosage: 1.0 ?G/KG, QW
     Route: 058
     Dates: start: 20120816, end: 20120913
  10. PEGINTRON [Suspect]
     Dosage: 0.8 ?G/KG, QW
     Route: 058
     Dates: start: 20120921
  11. PEGINTRON [Suspect]
     Dosage: 50 ?G, WEEK
     Route: 058
     Dates: end: 20121220
  12. URSO [Concomitant]
     Dosage: 300 MG, QD
     Route: 048
     Dates: end: 20121114
  13. FLUITRAN [Concomitant]
     Dosage: 2 MG, QD
     Route: 048
  14. MYSLEE [Concomitant]
     Dosage: 10 MG, QD
     Route: 048
  15. DORAL [Concomitant]
     Dosage: 20 MG, QD
     Route: 048
  16. AMOBAN [Concomitant]
     Dosage: 10 MG, QD
     Route: 048
  17. TRAVELMIN [Concomitant]
     Dosage: 1 DF, QD
     Route: 048
  18. TALION [Concomitant]
     Dosage: 20 MG, QD
     Route: 048
     Dates: start: 20120730
  19. AMLODIPINE [Concomitant]
     Dosage: 5 MG, QD
     Route: 048
     Dates: start: 20121213

REACTIONS (1)
  - Neutropenia [Recovered/Resolved]
